FAERS Safety Report 4467930-6 (Version None)
Quarter: 2004Q4

REPORT INFORMATION
  Report Type: 
  Country: None (occurrence: None)
  Receive Date: 20041004
  Receipt Date: 20040921
  Transmission Date: 20050328
  Serious: Yes (Other)
  Sender: FDA-Public Use
  Company Number: HQWYE233319JUL04

PATIENT
  Sex: Male

DRUGS (1)
  1. ADVIL [Suspect]
     Indication: PATENT DUCTUS ARTERIOSUS
     Dosage: SEE IMAGE

REACTIONS (6)
  - ABDOMINAL DISTENSION [None]
  - APGAR SCORE LOW [None]
  - INTESTINAL PERFORATION [None]
  - PNEUMOPERITONEUM [None]
  - SKIN DISCOLOURATION [None]
  - WHITE BLOOD CELL COUNT INCREASED [None]
